FAERS Safety Report 24641515 (Version 1)
Quarter: 2024Q4

REPORT INFORMATION
  Report Type: Other
  Country: AU (occurrence: AU)
  Receive Date: 20241120
  Receipt Date: 20241120
  Transmission Date: 20250114
  Serious: Yes (Hospitalization, Other)
  Sender: ANI
  Company Number: AU-ANIPHARMA-012868

PATIENT
  Sex: Female

DRUGS (2)
  1. IBUPROFEN [Suspect]
     Active Substance: IBUPROFEN
     Indication: Product used for unknown indication
     Route: 064
  2. PROSTAGLANDIN E1 [Concomitant]
     Active Substance: ALPROSTADIL
     Indication: Prophylaxis
     Route: 064

REACTIONS (3)
  - Tricuspid valve incompetence [Recovering/Resolving]
  - Papillary muscle rupture [Unknown]
  - Foetal exposure during pregnancy [Unknown]
